FAERS Safety Report 6546389-9 (Version None)
Quarter: 2010Q1

REPORT INFORMATION
  Report Type: 
  Country: None (occurrence: None)
  Receive Date: 20100114
  Receipt Date: 20091113
  Transmission Date: 20100710
  Serious: No
  Sender: FDA-Public Use
  Company Number: 2009BM000313

PATIENT
  Age: 31 Year
  Sex: Female
  Weight: 63.5036 kg

DRUGS (3)
  1. KUVAN [Suspect]
     Indication: PHENYLKETONURIA
     Dosage: 1400 MG;QD;PO
     Route: 048
     Dates: start: 20091019, end: 20091111
  2. ORTHO TRI-CYCLEN LO [Concomitant]
  3. CALCIUM [Concomitant]

REACTIONS (3)
  - PRURITUS [None]
  - RASH PRURITIC [None]
  - SCAR [None]
